FAERS Safety Report 5873875-7 (Version None)
Quarter: 2008Q3

REPORT INFORMATION
  Report Type: 
  Country: None (occurrence: None)
  Receive Date: 20080903
  Receipt Date: 20080903
  Transmission Date: 20090109
  Serious: Yes (Disabling)
  Sender: FDA-Public Use
  Company Number: None

PATIENT
  Sex: Female
  Weight: 53.3 kg

DRUGS (1)
  1. CLOFARABINE -CLOLAR- 4 -20 ML- USE VIALS MFD BY: AAIPHARMA INC. [Suspect]
     Indication: ACUTE LYMPHOCYTIC LEUKAEMIA
     Dosage: CLOFARABINE 60 MG DAILY IV
     Route: 042
     Dates: start: 20080830, end: 20080902

REACTIONS (3)
  - CHILLS [None]
  - TACHYCARDIA [None]
  - TREMOR [None]
